FAERS Safety Report 8684540 (Version 2)
Quarter: 2012Q4

REPORT INFORMATION
  Report Type: Report from Study
  Country: DE (occurrence: DE)
  Receive Date: 20120726
  Receipt Date: 20121008
  Transmission Date: 20130627
  Serious: Yes (Life-Threatening, Hospitalization)
  Sender: FDA-Public Use
  Company Number: DE-ROCHE-1091066

PATIENT
  Age: 82 Year
  Sex: Male
  Weight: 79.8 kg

DRUGS (11)
  1. MIRCERA [Suspect]
     Indication: ANAEMIA
     Dosage: last dose prior to SAE : 07/May/2012
     Route: 042
     Dates: start: 20111219
  2. PHENPROCOUMON [Concomitant]
     Route: 065
     Dates: start: 20111111
  3. VALSARTAN [Concomitant]
     Route: 065
     Dates: start: 20080605
  4. CARVEDILOL [Concomitant]
     Route: 065
     Dates: start: 20070521
  5. TORASEMID [Concomitant]
     Route: 065
     Dates: start: 20110606
  6. DIGITOXIN [Concomitant]
     Route: 065
     Dates: start: 20111028
  7. LEVOTHYROXIN NATRIUM [Concomitant]
     Route: 065
     Dates: start: 20070201
  8. ALFACALCIDOL [Concomitant]
     Route: 065
     Dates: start: 20110611
  9. DREISAVIT [Concomitant]
     Dosage: 1 tablet
     Route: 065
     Dates: start: 20111102
  10. METAMIZOL [Concomitant]
  11. AMLODIPINE [Concomitant]

REACTIONS (2)
  - Speech disorder [Recovered/Resolved]
  - Cerebral infarction [Recovered/Resolved]
